FAERS Safety Report 23819675 (Version 1)
Quarter: 2024Q2

REPORT INFORMATION
  Report Type: Spontaneous
  Country: US (occurrence: US)
  Receive Date: 20240506
  Receipt Date: 20240506
  Transmission Date: 20240715
  Serious: No
  Sender: FDA-Public Use
  Company Number: US-ELI_LILLY_AND_COMPANY-US202405001770

PATIENT
  Age: 50 Year
  Sex: Female

DRUGS (8)
  1. MOUNJARO [Suspect]
     Active Substance: TIRZEPATIDE
     Indication: Polycystic ovarian syndrome
     Dosage: 15 MG, UNKNOWN
     Route: 058
     Dates: start: 202206
  2. MOUNJARO [Suspect]
     Active Substance: TIRZEPATIDE
     Indication: Polycystic ovarian syndrome
     Dosage: 15 MG, UNKNOWN
     Route: 058
     Dates: start: 202206
  3. MOUNJARO [Suspect]
     Active Substance: TIRZEPATIDE
     Indication: Polycystic ovarian syndrome
     Dosage: 15 MG, UNKNOWN
     Route: 058
     Dates: start: 202206
  4. MOUNJARO [Suspect]
     Active Substance: TIRZEPATIDE
     Indication: Polycystic ovarian syndrome
     Dosage: 15 MG, UNKNOWN
     Route: 058
     Dates: start: 202206
  5. MOUNJARO [Suspect]
     Active Substance: TIRZEPATIDE
     Indication: Insulin resistance
     Dosage: 15 MG, UNKNOWN
     Route: 058
  6. MOUNJARO [Suspect]
     Active Substance: TIRZEPATIDE
     Indication: Insulin resistance
     Dosage: 15 MG, UNKNOWN
     Route: 058
  7. MOUNJARO [Suspect]
     Active Substance: TIRZEPATIDE
     Indication: Insulin resistance
     Dosage: 15 MG, UNKNOWN
     Route: 058
  8. MOUNJARO [Suspect]
     Active Substance: TIRZEPATIDE
     Indication: Insulin resistance
     Dosage: 15 MG, UNKNOWN
     Route: 058

REACTIONS (5)
  - Incorrect dose administered [Unknown]
  - Hyperhidrosis [Unknown]
  - Muscle spasms [Unknown]
  - Off label use [Unknown]
  - Abdominal discomfort [Unknown]

NARRATIVE: CASE EVENT DATE: 20240401
